FAERS Safety Report 8684118 (Version 2)
Quarter: 2012Q4

REPORT INFORMATION
  Report Type: 
  Country: US (occurrence: US)
  Receive Date: 20120726
  Receipt Date: 20121107
  Transmission Date: 20130627
  Serious: Yes (Hospitalization, Other)
  Sender: FDA-Public Use
  Company Number: US-ELI_LILLY_AND_COMPANY-US201207003959

PATIENT
  Age: 35 Year
  Sex: Female
  Weight: 59.86 kg

DRUGS (3)
  1. CYMBALTA [Suspect]
     Indication: FIBROMYALGIA
     Dosage: 30 mg, unknown
     Route: 048
     Dates: start: 20120524
  2. CYMBALTA [Suspect]
     Dosage: 60 mg, qd
     Route: 048
     Dates: end: 20120702
  3. CYMBALTA [Suspect]
     Dosage: UNK

REACTIONS (5)
  - Loss of consciousness [Recovered/Resolved]
  - Serum serotonin decreased [Recovered/Resolved]
  - Lethargy [Recovered/Resolved]
  - Muscle twitching [Recovered/Resolved]
  - Formication [Recovered/Resolved]
